FAERS Safety Report 5646854-2 (Version None)
Quarter: 2008Q1

REPORT INFORMATION
  Report Type: 
  Country: None (occurrence: None)
  Receive Date: 20080303
  Receipt Date: 20080228
  Transmission Date: 20080703
  Serious: Yes (Hospitalization)
  Sender: FDA-Public Use
  Company Number: A0712378A

PATIENT
  Age: 65 Year
  Sex: Male

DRUGS (3)
  1. ALLI [Suspect]
     Dates: start: 20080203, end: 20080215
  2. ZOCOR [Concomitant]
  3. ATACAND [Concomitant]

REACTIONS (3)
  - HAEMORRHOIDS [None]
  - PROCTALGIA [None]
  - RECTAL ABSCESS [None]
